FAERS Safety Report 8120615-7 (Version None)
Quarter: 2012Q1

REPORT INFORMATION
  Report Type: 
  Country: None (occurrence: None)
  Receive Date: 20120207
  Receipt Date: 20120203
  Transmission Date: 20120608
  Serious: Yes (Death)
  Sender: FDA-Public Use
  Company Number: BE-ASTRAZENECA-2012SE07665

PATIENT
  Sex: Female

DRUGS (6)
  1. CRESTOR [Suspect]
     Indication: CARDIAC DISORDER
     Route: 048
  2. LOPRESSOR [Concomitant]
  3. OMEPRAZOLE [Concomitant]
  4. EZETROLE [Concomitant]
  5. ASPIRIN [Concomitant]
     Indication: CARDIAC DISORDER
  6. PROLOPA [Concomitant]
     Indication: RESTLESS LEGS SYNDROME

REACTIONS (1)
  - PULMONARY FIBROSIS [None]
